FAERS Safety Report 12855014 (Version 1)
Quarter: 2016Q4

REPORT INFORMATION
  Report Type: Spontaneous
  Country: US (occurrence: US)
  Receive Date: 20161017
  Receipt Date: 20161017
  Transmission Date: 20170207
  Serious: Yes (Other)
  Sender: FDA-Public Use
  Company Number: US-SHIRE-US201614463

PATIENT
  Sex: Female
  Weight: 58.96 kg

DRUGS (8)
  1. VITAMIN D [Concomitant]
     Active Substance: CHOLECALCIFEROL
     Indication: OSTEOPOROSIS
     Dosage: 2000 IU, 1X/DAY:QD
     Route: 048
  2. VENLAFAXINE [Concomitant]
     Active Substance: VENLAFAXINE HYDROCHLORIDE
     Indication: MENOPAUSE
     Dosage: 150 MG, 1X/DAY:QD
     Route: 048
  3. LIALDA [Suspect]
     Active Substance: MESALAMINE
     Dosage: UNK, UNKNOWN
     Route: 048
  4. OMEPRAZOLE. [Concomitant]
     Active Substance: OMEPRAZOLE
     Indication: DYSPEPSIA
     Dosage: 40 MG, 1X/DAY:QD
     Route: 048
     Dates: start: 2006
  5. CALCIUM MAGNESIUM                  /01412301/ [Concomitant]
     Indication: OSTEOPOROSIS
     Dosage: 600 MG, 2X/DAY:BID
     Route: 048
  6. LISINOPRIL. [Concomitant]
     Active Substance: LISINOPRIL
     Indication: HYPERTENSION
     Dosage: 20 MG, 1X/DAY:QD
     Route: 048
     Dates: start: 2006
  7. CELECOXIB. [Concomitant]
     Active Substance: CELECOXIB
     Indication: ARTHRITIS
     Dosage: 100 MG, 2X/DAY:BID
     Route: 048
     Dates: start: 2012
  8. LIALDA [Suspect]
     Active Substance: MESALAMINE
     Indication: COLITIS ULCERATIVE
     Dosage: 1.2 G, 2X/DAY:BID
     Route: 048
     Dates: start: 2013

REACTIONS (7)
  - Mucous stools [Recovered/Resolved]
  - Colitis ulcerative [Recovered/Resolved]
  - Haematochezia [Recovered/Resolved]
  - Inappropriate schedule of drug administration [Not Recovered/Not Resolved]
  - Osteopenia [Not Recovered/Not Resolved]
  - Diarrhoea [Recovered/Resolved]
  - Muscle spasms [Recovered/Resolved]

NARRATIVE: CASE EVENT DATE: 2013
